FAERS Safety Report 8240086-X (Version None)
Quarter: 2012Q1

REPORT INFORMATION
  Report Type: 
  Country: None (occurrence: None)
  Receive Date: 20120327
  Receipt Date: 20120327
  Transmission Date: 20120608
  Serious: Yes (Hospitalization)
  Sender: FDA-Public Use
  Company Number: None

PATIENT
  Sex: Male

DRUGS (1)
  1. TACROLIMUS [Suspect]
     Indication: LIVER TRANSPLANT
     Dosage: 1 MG BID PO
     Route: 048
     Dates: start: 20101201, end: 20110301

REACTIONS (3)
  - PRODUCT SUBSTITUTION ISSUE [None]
  - RASH [None]
  - PRURITUS [None]
